FAERS Safety Report 9749797 (Version 1)
Quarter: 2013Q4

REPORT INFORMATION
  Report Type: Spontaneous
  Country: US (occurrence: US)
  Receive Date: 20131212
  Receipt Date: 20131212
  Transmission Date: 20140711
  Serious: No
  Sender: FDA-Public Use
  Company Number: US-TEVA-395145USA

PATIENT
  Age: 34 Year
  Sex: Female
  Weight: 59.02 kg

DRUGS (4)
  1. PARAGARD 380A [Suspect]
     Indication: CONTRACEPTION
     Route: 015
     Dates: start: 20130220, end: 20130327
  2. LEVOXYL [Concomitant]
  3. CLINDAMYCIN [Concomitant]
  4. DIFFERIN [Concomitant]

REACTIONS (1)
  - Device expulsion [Recovered/Resolved]
